FAERS Safety Report 14391392 (Version 3)
Quarter: 2018Q1

REPORT INFORMATION
  Report Type: Spontaneous
  Country: US (occurrence: US)
  Receive Date: 20180116
  Receipt Date: 20180209
  Transmission Date: 20180509
  Serious: Yes (Other)
  Sender: FDA-Public Use
  Company Number: US-RECORDATI RARE DISEASES-US-R13005-18-00004

PATIENT
  Sex: Female

DRUGS (13)
  1. DOXORUBICIN [Suspect]
     Active Substance: DOXORUBICIN
     Indication: CHOROID PLEXUS CARCINOMA
     Route: 065
     Dates: start: 20140219, end: 20140409
  2. SIMVASTATIN. [Concomitant]
     Active Substance: SIMVASTATIN
     Indication: CHOROID PLEXUS CARCINOMA
     Route: 065
     Dates: start: 20140129
  3. METFORMIN [Concomitant]
     Active Substance: METFORMIN HYDROCHLORIDE
     Indication: CHOROID PLEXUS CARCINOMA
     Route: 065
     Dates: start: 20140129
  4. LEUCOVORIN. [Suspect]
     Active Substance: LEUCOVORIN
     Indication: CHOROID PLEXUS CARCINOMA
     Route: 042
     Dates: start: 20131018
  5. VINCRISTINE [Suspect]
     Active Substance: VINCRISTINE
     Route: 065
     Dates: start: 20140219, end: 20140409
  6. METHOTREXATE. [Suspect]
     Active Substance: METHOTREXATE
     Indication: CHOROID PLEXUS CARCINOMA
     Dosage: 5 G/M2
     Route: 065
     Dates: start: 20131018
  7. DACTINOMYCIN [Suspect]
     Active Substance: DACTINOMYCIN
     Indication: CHOROID PLEXUS CARCINOMA
     Route: 065
     Dates: start: 20140219, end: 20140409
  8. LEUCOVORIN. [Suspect]
     Active Substance: LEUCOVORIN
     Route: 042
  9. VINCRISTINE [Suspect]
     Active Substance: VINCRISTINE
     Indication: CHOROID PLEXUS CARCINOMA
     Route: 065
     Dates: start: 20131018
  10. MELATONIN [Concomitant]
     Active Substance: MELATONIN
     Indication: CHOROID PLEXUS CARCINOMA
     Route: 065
     Dates: start: 20140129
  11. CISPLATIN. [Suspect]
     Active Substance: CISPLATIN
     Indication: CHOROID PLEXUS CARCINOMA
     Route: 065
     Dates: start: 20140219, end: 20140409
  12. CYTARABINE. [Suspect]
     Active Substance: CYTARABINE
     Indication: CHOROID PLEXUS CARCINOMA
     Dates: start: 20131018
  13. HYDROCORTISONE. [Suspect]
     Active Substance: HYDROCORTISONE
     Indication: CHOROID PLEXUS CARCINOMA
     Route: 065
     Dates: start: 20131018

REACTIONS (3)
  - Visual field defect [Unknown]
  - Off label use [Recovered/Resolved]
  - Condition aggravated [Unknown]

NARRATIVE: CASE EVENT DATE: 20140219
